FAERS Safety Report 7100092-5 (Version None)
Quarter: 2010Q4

REPORT INFORMATION
  Report Type: 
  Country: None (occurrence: None)
  Receive Date: 20101112
  Receipt Date: 20091120
  Transmission Date: 20110411
  Serious: No
  Sender: FDA-Public Use
  Company Number: A0822135A

PATIENT
  Age: 56 Year
  Sex: Male

DRUGS (4)
  1. COREG [Suspect]
     Dosage: 50MG TWICE PER DAY
     Route: 048
     Dates: start: 20000101
  2. LISINOPRIL [Concomitant]
  3. AMLODIPINE [Concomitant]
  4. HYDROCHLOROTHIAZIDE [Concomitant]

REACTIONS (6)
  - ASTHENIA [None]
  - CONDITION AGGRAVATED [None]
  - DIZZINESS [None]
  - DYSPNOEA EXERTIONAL [None]
  - LIMB DISCOMFORT [None]
  - MOBILITY DECREASED [None]
